FAERS Safety Report 6124300-2 (Version None)
Quarter: 2009Q1

REPORT INFORMATION
  Report Type: 
  Country: None (occurrence: None)
  Receive Date: 20090317
  Receipt Date: 20090305
  Transmission Date: 20090719
  Serious: Yes (Congenital Anomaly)
  Sender: FDA-Public Use
  Company Number: 8042422

PATIENT
  Sex: Male

DRUGS (8)
  1. KEPPRA [Suspect]
     Indication: CONVULSION
     Dosage: 1500 MG TRP
     Route: 064
     Dates: end: 20070501
  2. KEPPRA [Suspect]
     Indication: CONVULSION
     Dosage: 4000 MG TRP
     Route: 064
     Dates: start: 20070815
  3. KEPPRA [Suspect]
     Indication: CONVULSION
     Dosage: 5000 MG TRP
     Route: 064
     Dates: end: 20090110
  4. KEPPRA [Suspect]
     Indication: CONVULSION
     Dosage: TRM
     Route: 063
  5. FOLIC ACID [Concomitant]
  6. VITAMIN TAB [Concomitant]
  7. IRON [Concomitant]
  8. LAMICTAL [Concomitant]

REACTIONS (11)
  - CARDIAC MURMUR [None]
  - CONJUNCTIVITIS [None]
  - DRUG EXPOSURE VIA BREAST MILK [None]
  - EAR INFECTION [None]
  - HYPOSPADIAS [None]
  - LARYNGOMALACIA [None]
  - MATERNAL DRUGS AFFECTING FOETUS [None]
  - NEONATAL RESPIRATORY DISTRESS SYNDROME [None]
  - RESPIRATORY SYNCYTIAL VIRUS INFECTION [None]
  - UPPER RESPIRATORY TRACT INFECTION [None]
  - VIRAL INFECTION [None]
